FAERS Safety Report 6845795-2 (Version None)
Quarter: 2010Q3

REPORT INFORMATION
  Report Type: 
  Country: None (occurrence: None)
  Receive Date: 20100715
  Receipt Date: 20071012
  Transmission Date: 20110219
  Serious: Yes (Other)
  Sender: FDA-Public Use
  Company Number: US-PFIZER INC-2007072639

PATIENT
  Sex: Male
  Weight: 80.7 kg

DRUGS (13)
  1. CHANTIX [Suspect]
     Indication: NICOTINE DEPENDENCE
     Route: 048
     Dates: start: 20070827, end: 20070827
  2. TOPROL-XL [Concomitant]
  3. LASIX [Concomitant]
  4. LISINOPRIL [Concomitant]
  5. ALDACTONE [Concomitant]
  6. PRILOSEC [Concomitant]
  7. NORVASC [Concomitant]
  8. ZETIA [Concomitant]
  9. FLUVASTATIN [Concomitant]
  10. ACETYLSALICYLIC ACID [Concomitant]
  11. MULTI-VITAMINS [Concomitant]
  12. PACERONE [Concomitant]
  13. ALL OTHER THERAPEUTIC PRODUCTS [Concomitant]

REACTIONS (1)
  - DEAFNESS UNILATERAL [None]
